FAERS Safety Report 12795077 (Version 1)
Quarter: 2016Q3

REPORT INFORMATION
  Report Type: Report from Study
  Country: US (occurrence: US)
  Receive Date: 20160929
  Receipt Date: 20160929
  Transmission Date: 20161109
  Serious: Yes (Other)
  Sender: FDA-Public Use
  Company Number: US-AMGEN-USASL2016132784

PATIENT

DRUGS (1)
  1. KYPROLIS [Suspect]
     Active Substance: CARFILZOMIB
     Indication: PRODUCT USED FOR UNKNOWN INDICATION
     Dosage: UNK
     Route: 065

REACTIONS (20)
  - Cellulitis [Unknown]
  - Cardiac failure congestive [Unknown]
  - Cardiac failure [Unknown]
  - Localised oedema [Unknown]
  - Adult failure to thrive [Unknown]
  - Abdominal pain [Unknown]
  - Hypothyroidism [Unknown]
  - Iron deficiency anaemia [Unknown]
  - Dysphagia [Unknown]
  - Chronic kidney disease [Unknown]
  - Pain [Unknown]
  - Anaemia [Unknown]
  - Cardiomyopathy [Unknown]
  - Embolism venous [Unknown]
  - Gastrooesophageal reflux disease [Unknown]
  - Hypercalcaemia [Unknown]
  - Fatigue [Unknown]
  - Nephrogenic anaemia [Unknown]
  - Oedema [Unknown]
  - Essential hypertension [Unknown]

NARRATIVE: CASE EVENT DATE: 20150813
